FAERS Safety Report 6819441-8 (Version None)
Quarter: 2010Q3

REPORT INFORMATION
  Report Type: 
  Country: None (occurrence: None)
  Receive Date: 20100707
  Receipt Date: 20100625
  Transmission Date: 20110219
  Serious: Yes (Other)
  Sender: FDA-Public Use
  Company Number: JP-PFIZER INC-2010073066

PATIENT
  Age: 62 Year
  Sex: Female

DRUGS (1)
  1. SOLANAX [Suspect]
     Indication: ANXIETY
     Dosage: 0.4 MG, AS NEEDED
     Route: 048

REACTIONS (3)
  - ALTERED STATE OF CONSCIOUSNESS [None]
  - ANXIETY [None]
  - SUICIDAL IDEATION [None]
